FAERS Safety Report 14371580 (Version 1)
Quarter: 2018Q1

REPORT INFORMATION
  Report Type: Spontaneous
  Country: US (occurrence: US)
  Receive Date: 20180109
  Receipt Date: 20180109
  Transmission Date: 20180509
  Serious: Yes (Other)
  Sender: FDA-Public Use
  Company Number: None

PATIENT
  Age: 42 Year
  Sex: Female
  Weight: 58.5 kg

DRUGS (2)
  1. ANTIBIOTICS [Concomitant]
     Active Substance: UNSPECIFIED INGREDIENT
  2. BUSPIRONE [Suspect]
     Active Substance: BUSPIRONE HYDROCHLORIDE
     Indication: DRUG THERAPY

REACTIONS (7)
  - Nervousness [None]
  - Insomnia [None]
  - Fear [None]
  - Hallucination [None]
  - Nightmare [None]
  - Hallucination, auditory [None]
  - Anxiety [None]

NARRATIVE: CASE EVENT DATE: 20180108
